FAERS Safety Report 9796223 (Version 2)
Quarter: 2014Q1

REPORT INFORMATION
  Report Type: Spontaneous
  Country: US (occurrence: US)
  Receive Date: 20140103
  Receipt Date: 20140206
  Transmission Date: 20141002
  Serious: Yes (Hospitalization)
  Sender: FDA-Public Use
  Company Number: US-009507513-1312USA012109

PATIENT
  Sex: Female

DRUGS (3)
  1. SINEMET [Suspect]
     Indication: MUSCLE RIGIDITY
     Dosage: 1 DF, Q8H, SINEMET 25/100
     Route: 048
     Dates: start: 200912
  2. SINEMET CR [Suspect]
     Indication: MUSCLE RIGIDITY
     Dosage: 1 DF, Q8H, SINEMET 25/100
     Route: 048
  3. DILANTIN [Concomitant]

REACTIONS (3)
  - Urinary tract infection [Not Recovered/Not Resolved]
  - Muscle rigidity [Not Recovered/Not Resolved]
  - Drug effect incomplete [Not Recovered/Not Resolved]
